FAERS Safety Report 16072326 (Version 1)
Quarter: 2019Q1

REPORT INFORMATION
  Report Type: Spontaneous
  Country: US (occurrence: US)
  Receive Date: 20190314
  Receipt Date: 20190314
  Transmission Date: 20190418
  Serious: No
  Sender: FDA-Public Use
  Company Number: US-ALLERGAN-1900472US

PATIENT
  Age: 17 Year

DRUGS (1)
  1. CANASA [Suspect]
     Active Substance: MESALAMINE
     Indication: COLITIS ULCERATIVE
     Dosage: 1000 MG, QD
     Route: 065

REACTIONS (1)
  - Off label use [Unknown]
